FAERS Safety Report 11208818 (Version 1)
Quarter: 2015Q2

REPORT INFORMATION
  Report Type: Spontaneous
  Country: US (occurrence: None)
  Receive Date: 20150619
  Receipt Date: 20150619
  Transmission Date: 20150821
  Serious: Yes (Disabling)
  Sender: FDA-Public Use
  Company Number: None

PATIENT
  Age: 71 Year
  Sex: Female
  Weight: 71.67 kg

DRUGS (4)
  1. LEVOFLOXACIN (GENERIC FOR LEVAQUINJ) - A FLUROQUINOLONE TEVA USA [Suspect]
     Active Substance: LEVOFLOXACIN
     Indication: BRONCHITIS
     Dates: start: 20150419, end: 20150427
  2. ASPIRIN. [Concomitant]
     Active Substance: ASPIRIN
  3. CIPRO [Suspect]
     Active Substance: CIPROFLOXACIN HYDROCHLORIDE
     Dosage: BY MOUTH 2 GIVEN IN EMERGENCY CENTER
     Dates: start: 20150419
  4. IBUPROFEN. [Concomitant]
     Active Substance: IBUPROFEN

REACTIONS (9)
  - Pain in extremity [None]
  - Gait disturbance [None]
  - Tendon disorder [None]
  - Mobility decreased [None]
  - Arthropathy [None]
  - Muscular weakness [None]
  - Activities of daily living impaired [None]
  - Arthralgia [None]
  - Joint crepitation [None]

NARRATIVE: CASE EVENT DATE: 20150421
